FAERS Safety Report 6108308-9 (Version None)
Quarter: 2009Q1

REPORT INFORMATION
  Report Type: 
  Country: None (occurrence: None)
  Receive Date: 20090309
  Receipt Date: 20090302
  Transmission Date: 20090719
  Serious: Yes (Hospitalization, Other)
  Sender: FDA-Public Use
  Company Number: DE-ROCHE-617766

PATIENT
  Age: 42 Year
  Sex: Female

DRUGS (8)
  1. DIAZEPAM [Suspect]
     Indication: STATUS EPILEPTICUS
     Route: 042
  2. LAMOTRIGINE [Suspect]
     Indication: STATUS EPILEPTICUS
     Route: 065
  3. GABAPENTIN [Suspect]
     Indication: STATUS EPILEPTICUS
     Route: 065
  4. ASPIRIN [Suspect]
     Route: 065
     Dates: start: 19930101
  5. LORAZEPAM [Suspect]
     Indication: STATUS EPILEPTICUS
     Route: 042
  6. ANTICONVULSANT [Suspect]
     Indication: STATUS EPILEPTICUS
     Dosage: INTRAVENOUS LACOSAMIDE 200MG BOLUS
     Route: 065
  7. ANTICONVULSANT [Suspect]
     Dosage: ORAL ADMINISTRATION FROM DAY 2
     Route: 065
  8. DOMPERIDON [Suspect]
     Indication: NAUSEA
     Dosage: FROM DAY 2 FOR 3 DAYS
     Route: 065

REACTIONS (7)
  - ELECTROENCEPHALOGRAM ABNORMAL [None]
  - ERYTHEMA [None]
  - LEUKOCYTOSIS [None]
  - NAUSEA [None]
  - RESPIRATORY RATE DECREASED [None]
  - SEDATION [None]
  - STATUS EPILEPTICUS [None]
